FAERS Safety Report 8989070 (Version 1)
Quarter: 2012Q4

REPORT INFORMATION
  Report Type: Spontaneous
  Country: US (occurrence: None)
  Receive Date: 20121224
  Receipt Date: 20121224
  Transmission Date: 20130627
  Serious: No
  Sender: FDA-Public Use
  Company Number: None

PATIENT
  Sex: Male
  Weight: 70.31 kg

DRUGS (2)
  1. CELEBREX [Suspect]
     Indication: ARTHRITIS
     Dosage: 100 mg twice daily po
     Route: 048
     Dates: start: 20091201, end: 20101201
  2. CELEBREX [Suspect]
     Indication: FRACTURED SACRUM
     Dosage: 100 mg twice daily po
     Route: 048
     Dates: start: 20091201, end: 20101201

REACTIONS (1)
  - Drug ineffective [None]
